FAERS Safety Report 7823690-X (Version None)
Quarter: 2011Q4

REPORT INFORMATION
  Report Type: 
  Country: None (occurrence: None)
  Receive Date: 20111019
  Receipt Date: 20111017
  Transmission Date: 20120403
  Serious: Yes (Other)
  Sender: FDA-Public Use
  Company Number: US-PFIZER INC-2011249148

PATIENT
  Sex: Female

DRUGS (3)
  1. VALIUM [Suspect]
     Dosage: UNK
  2. DITROPAN [Suspect]
     Dosage: UNK
  3. ANTIVERT [Suspect]
     Dosage: UNK

REACTIONS (4)
  - SURGERY [None]
  - OSTECTOMY [None]
  - NERVOUS SYSTEM DISORDER [None]
  - NERVE INJURY [None]
